FAERS Safety Report 10024264 (Version 1)
Quarter: 2014Q1

REPORT INFORMATION
  Report Type: Spontaneous
  Country: US (occurrence: None)
  Receive Date: 20140129
  Receipt Date: 20140129
  Transmission Date: 20141002
  Serious: Yes (Other)
  Sender: FDA-Public Use
  Company Number: 54973 AE # 1524

PATIENT
  Age: 39 Year
  Sex: Female

DRUGS (1)
  1. HYLANDS DEFEND COLD + COUGH LIQUID [Suspect]
     Indication: NASOPHARYNGITIS
     Dosage: 3 TSP TWICE ON 01/09/14

REACTIONS (6)
  - Swollen tongue [None]
  - Urticaria [None]
  - Pruritus [None]
  - Swelling face [None]
  - Dyspnoea [None]
  - Anaphylactic reaction [None]
